FAERS Safety Report 26109800 (Version 1)
Quarter: 2025Q4

REPORT INFORMATION
  Report Type: Other
  Country: CA (occurrence: CA)
  Receive Date: 20251201
  Receipt Date: 20251201
  Transmission Date: 20260117
  Serious: Yes (Other)
  Sender: INCYTE
  Company Number: CA-002147023-NVSC2025CA182374

PATIENT
  Age: 78 Year

DRUGS (1)
  1. RUXOLITINIB [Suspect]
     Active Substance: RUXOLITINIB
     Indication: Vitiligo
     Dosage: UNK (2 EVERY 1 DAYS)
     Route: 065

REACTIONS (1)
  - Vocal cord disorder [Unknown]
